FAERS Safety Report 7932175-1 (Version None)
Quarter: 2011Q4

REPORT INFORMATION
  Report Type: 
  Country: None (occurrence: None)
  Receive Date: 20111121
  Receipt Date: 20111110
  Transmission Date: 20120403
  Serious: Yes (Hospitalization)
  Sender: FDA-Public Use
  Company Number: US-BAXTER-2011BH033157

PATIENT
  Age: 30 Year
  Sex: Male

DRUGS (2)
  1. DIANEAL [Suspect]
     Indication: PERITONEAL DIALYSIS
     Route: 033
  2. EPOGEN [Suspect]
     Indication: ANAEMIA
     Route: 065

REACTIONS (2)
  - ANAEMIA [None]
  - TREATMENT NONCOMPLIANCE [None]
